FAERS Safety Report 9870941 (Version 1)
Quarter: 2014Q1

REPORT INFORMATION
  Report Type: Spontaneous
  Country: US (occurrence: US)
  Receive Date: 20140205
  Receipt Date: 20140205
  Transmission Date: 20141002
  Serious: No
  Sender: FDA-Public Use
  Company Number: US-009507513-1402USA001211

PATIENT
  Age: 93 Year
  Sex: Male

DRUGS (2)
  1. MIRALAX [Suspect]
     Indication: CONSTIPATION
     Dosage: 8.5 G, QD
     Route: 048
  2. MIRALAX [Suspect]
     Dosage: 17 G, QD
     Route: 048

REACTIONS (3)
  - Unevaluable event [Unknown]
  - Underdose [Unknown]
  - Drug effect delayed [Unknown]
